FAERS Safety Report 5281294-X (Version None)
Quarter: 2007Q1

REPORT INFORMATION
  Report Type: 
  Country: None (occurrence: None)
  Receive Date: 20061221
  Receipt Date: 20040520
  Transmission Date: 20070707
  Serious: No
  Sender: FDA-Public Use
  Company Number: SP00278

PATIENT
  Age: 46 Year
  Sex: Female

DRUGS (3)
  1. XIFAXAN [Suspect]
     Indication: CROHN'S DISEASE
     Dates: start: 20040517
  2. COLAZAL [Concomitant]
  3. FLAGYL [Concomitant]

REACTIONS (2)
  - DEHYDRATION [None]
  - HYPOTENSION [None]
